FAERS Safety Report 12447261 (Version 3)
Quarter: 2016Q3

REPORT INFORMATION
  Report Type: Report from Study
  Country: MX (occurrence: MX)
  Receive Date: 20160608
  Receipt Date: 20160721
  Transmission Date: 20161109
  Serious: Yes (Hospitalization)
  Sender: FDA-Public Use
  Company Number: PHHY2016MX068289

PATIENT
  Age: 38 Year
  Sex: Male

DRUGS (5)
  1. FOLIC ACID. [Concomitant]
     Active Substance: FOLIC ACID
     Indication: PRODUCT USED FOR UNKNOWN INDICATION
     Dosage: 5 MG, QD
     Route: 065
     Dates: start: 201604
  2. GALVUS MET [Suspect]
     Active Substance: METFORMIN HYDROCHLORIDE\VILDAGLIPTIN
     Dosage: UNK
     Route: 065
  3. GALVUS MET [Suspect]
     Active Substance: METFORMIN HYDROCHLORIDE\VILDAGLIPTIN
     Indication: DIABETES MELLITUS
     Dosage: 2 DF (850 MG OF METFORMIN/50 MG OF VILDAGLIPTIN), QD
     Route: 065
     Dates: start: 201602
  4. METFORMIN [Suspect]
     Active Substance: METFORMIN HYDROCHLORIDE
     Indication: DIABETES MELLITUS
     Dosage: UNK
     Route: 065
  5. CASEIN. [Concomitant]
     Active Substance: CASEIN
     Indication: PRODUCT USED FOR UNKNOWN INDICATION
     Dosage: 2 DF (2 SPOONS), BID (AT BREAKFAST AND DINNER)
     Route: 065

REACTIONS (6)
  - Headache [Recovered/Resolved]
  - Insomnia [Unknown]
  - Malnutrition [Recovering/Resolving]
  - Colitis ulcerative [Recovering/Resolving]
  - Anaemia [Recovering/Resolving]
  - Stress [Unknown]

NARRATIVE: CASE EVENT DATE: 201604
